FAERS Safety Report 24540440 (Version 2)
Quarter: 2024Q4

REPORT INFORMATION
  Report Type: Spontaneous
  Country: AR (occurrence: AR)
  Receive Date: 20241023
  Receipt Date: 20241108
  Transmission Date: 20250114
  Serious: Yes (Other)
  Sender: MERCK
  Company Number: AR-009507513-2410ARG009738

PATIENT
  Age: 56 Year
  Sex: Male
  Weight: 85 kg

DRUGS (2)
  1. PEMBROLIZUMAB [Suspect]
     Active Substance: PEMBROLIZUMAB
     Indication: Skin squamous cell carcinoma metastatic
     Dosage: 200 MILLIGRAM, Q3W
     Dates: start: 20230426, end: 20240417
  2. PEMBROLIZUMAB [Suspect]
     Active Substance: PEMBROLIZUMAB
     Indication: Skin squamous cell carcinoma recurrent

REACTIONS (6)
  - Pseudo Cushing^s syndrome [Not Recovered/Not Resolved]
  - Malignant neoplasm progression [Recovered/Resolved]
  - Hypothyroidism [Not Recovered/Not Resolved]
  - Primary adrenal insufficiency [Not Recovered/Not Resolved]
  - Rash pruritic [Not Recovered/Not Resolved]
  - Dermatitis [Unknown]

NARRATIVE: CASE EVENT DATE: 20230823
